FAERS Safety Report 8183555-3 (Version None)
Quarter: 2012Q1

REPORT INFORMATION
  Report Type: 
  Country: None (occurrence: None)
  Receive Date: 20120305
  Receipt Date: 20120228
  Transmission Date: 20120608
  Serious: Yes (Death, Hospitalization, Other)
  Sender: FDA-Public Use
  Company Number: US-TEVA-325320USA

PATIENT
  Sex: Male
  Weight: 99.88 kg

DRUGS (9)
  1. CISPLATIN [Suspect]
     Dosage: 1-5 X3; 35MG
     Dates: start: 20110131, end: 20110408
  2. MANNITOL [Concomitant]
     Dates: start: 20110131, end: 20110408
  3. SODIUM CHLORIDE [Suspect]
     Dosage: 100 TO 250 CC
     Dates: start: 20110131, end: 20110408
  4. DEXAMETHASONE [Suspect]
     Indication: VOMITING
     Dosage: 4 TABLET;
     Dates: start: 20110321, end: 20110325
  5. APREPITANT [Concomitant]
     Dosage: DAY 1 X4 CYCLES
     Dates: start: 20110131, end: 20110404
  6. ONDANSETRON [Concomitant]
     Dosage: DAY 1-5 X4 CYCLES
     Dates: start: 20110131, end: 20110408
  7. PALONOSETRON HYDROCHLORIDE [Concomitant]
     Dosage: DAY 5 X4 CYCLES
     Dates: start: 20110204, end: 20110408
  8. DEXAMETHASONE SODIUM PHOSPHATE [Suspect]
     Indication: NAUSEA
     Dosage: D 1-5 X3 CYCLE
     Dates: start: 20110131, end: 20110406
  9. ETOPOSIDE [Suspect]
     Indication: SEMINOMA
     Dosage: 230 MILLIGRAM; 1-5 X4
     Dates: start: 20110131, end: 20110408

REACTIONS (16)
  - LACTIC ACIDOSIS [None]
  - MENTAL STATUS CHANGES [None]
  - ABDOMINAL PAIN [None]
  - HEPATOMEGALY [None]
  - TINNITUS [None]
  - PULMONARY EMBOLISM [None]
  - PULMONARY OEDEMA [None]
  - PAIN IN EXTREMITY [None]
  - CARDIO-RESPIRATORY ARREST [None]
  - HYPERGLYCAEMIA [None]
  - DEHYDRATION [None]
  - NEUTROPENIA [None]
  - ANAEMIA [None]
  - HYPERTENSIVE HEART DISEASE [None]
  - DEEP VEIN THROMBOSIS [None]
  - TINEA PEDIS [None]
